FAERS Safety Report 9719473 (Version 1)
Quarter: 2013Q4

REPORT INFORMATION
  Report Type: Spontaneous
  Country: JP (occurrence: JP)
  Receive Date: 20131128
  Receipt Date: 20131128
  Transmission Date: 20140711
  Serious: Yes (Other)
  Sender: FDA-Public Use
  Company Number: JP-AMGEN-JPNSP2013083367

PATIENT
  Age: 76 Year
  Sex: Male

DRUGS (2)
  1. RANMARK [Suspect]
     Indication: BONE LESION
     Dosage: 120 MG, UNK
     Route: 058
  2. CRAVIT [Suspect]
     Indication: OSTEONECROSIS OF JAW
     Dosage: UNK
     Route: 048

REACTIONS (2)
  - Osteonecrosis of jaw [Not Recovered/Not Resolved]
  - Decreased appetite [Recovered/Resolved]
